FAERS Safety Report 15266285 (Version 1)
Quarter: 2018Q4

REPORT INFORMATION
  Report Type: Spontaneous
  Country: RO (occurrence: RO)
  Receive Date: 20180810
  Receipt Date: 20180810
  Transmission Date: 20190204
  Serious: Yes (Other)
  Sender: FDA-Public Use
  Company Number: RO-PFIZER INC-2018314920

PATIENT
  Age: 71 Year
  Sex: Female

DRUGS (6)
  1. SORTIS [Suspect]
     Active Substance: ATORVASTATIN
     Dosage: UNK
  2. BETASERC /00141801/ [Suspect]
     Active Substance: BETAHISTINE
     Dosage: UNK
  3. CAVINTON [Suspect]
     Active Substance: VINPOCETINE
     Dosage: UNK
  4. TRIMETAZIDINE DIHYDROCHLORIDE [Suspect]
     Active Substance: TRIMETAZIDINE DIHYDROCHLORIDE
     Dosage: UNK
  5. BETALOC /00376903/ [Suspect]
     Active Substance: METOPROLOL SUCCINATE
     Dosage: UNK
  6. ACID ACETILSALICILIC KRKA [Suspect]
     Active Substance: ASPIRIN
     Indication: ISCHAEMIC HEART DISEASE PROPHYLAXIS
     Dosage: 1 DF, SINGLE DOSE
     Dates: start: 20180627

REACTIONS (4)
  - Malaise [Unknown]
  - Chest pain [Unknown]
  - Dyspnoea [Unknown]
  - Choking [Unknown]
